FAERS Safety Report 9328769 (Version 1)
Quarter: 2013Q2

REPORT INFORMATION
  Report Type: Spontaneous
  Country: US (occurrence: US)
  Receive Date: 20130604
  Receipt Date: 20130604
  Transmission Date: 20140414
  Serious: No
  Sender: FDA-Public Use
  Company Number: US-SANOFI-AVENTIS-2013SA012663

PATIENT
  Age: 53 Year
  Sex: Female

DRUGS (2)
  1. SOLOSTAR [Suspect]
     Dosage: 20-22 UNITS
  2. LANTUS SOLOSTAR [Suspect]
     Indication: TYPE 2 DIABETES MELLITUS
     Dosage: 20-22 UNITS
     Route: 051

REACTIONS (5)
  - Feeling abnormal [Unknown]
  - Injection site scar [Unknown]
  - Injection site pain [Unknown]
  - Blood glucose increased [Unknown]
  - Incorrect storage of drug [Unknown]
